FAERS Safety Report 14488569 (Version 1)
Quarter: 2018Q1

REPORT INFORMATION
  Report Type: Spontaneous
  Country: US (occurrence: US)
  Receive Date: 20180205
  Receipt Date: 20180205
  Transmission Date: 20180509
  Serious: No
  Sender: FDA-Public Use
  Company Number: US-PFIZER INC-2018042987

PATIENT
  Age: 5 Year
  Sex: Female
  Weight: 22.68 kg

DRUGS (1)
  1. QUILLICHEW ER [Suspect]
     Active Substance: METHYLPHENIDATE HYDROCHLORIDE
     Indication: PSYCHOMOTOR HYPERACTIVITY
     Dosage: UNK
     Dates: start: 20180129

REACTIONS (4)
  - Logorrhoea [Unknown]
  - Drug administered to patient of inappropriate age [Unknown]
  - Urinary tract infection [Unknown]
  - Urinary incontinence [Unknown]

NARRATIVE: CASE EVENT DATE: 20180129
